FAERS Safety Report 9337900 (Version 1)
Quarter: 2013Q2

REPORT INFORMATION
  Report Type: Report from Study
  Country: US (occurrence: US)
  Receive Date: 20130608
  Receipt Date: 20130608
  Transmission Date: 20140414
  Serious: Yes (Death)
  Sender: FDA-Public Use
  Company Number: US-ROCHE-1234203

PATIENT
  Sex: 0

DRUGS (8)
  1. TRASTUZUMAB [Suspect]
     Indication: HER-2 POSITIVE BREAST CANCER
     Dosage: LOADING DOSE ON WEEK ONE
     Route: 065
  2. TRASTUZUMAB [Suspect]
     Route: 065
  3. TRASTUZUMAB [Suspect]
     Dosage: DAY 1,FOR  40 WEEKS
     Route: 065
  4. DOXORUBIN [Suspect]
     Indication: HER-2 POSITIVE BREAST CANCER
     Dosage: RECEIVED ON DAY 1,EVERY 2 OR 3 WEEK FOR 4 CYCLES
     Route: 065
  5. CYCLOPHOSPHAMIDE [Suspect]
     Indication: HER-2 POSITIVE BREAST CANCER
     Dosage: RECEIVED ON DAY 1, EVERY 2  OR 3 WEEK FOR 4 CYCLES
     Route: 065
  6. PACLITAXEL [Suspect]
     Indication: HER-2 POSITIVE BREAST CANCER
     Route: 065
  7. LAPATINIB [Suspect]
     Indication: HER-2 POSITIVE BREAST CANCER
     Dosage: DAILY
     Route: 048
  8. LAPATINIB [Suspect]
     Dosage: FOR 40 WEEKS
     Route: 048

REACTIONS (1)
  - Myocardial infarction [Fatal]
